FAERS Safety Report 6264048-7 (Version None)
Quarter: 2009Q3

REPORT INFORMATION
  Report Type: 
  Country: None (occurrence: None)
  Receive Date: 20090710
  Receipt Date: 20090629
  Transmission Date: 20100115
  Serious: Yes (Disabling)
  Sender: FDA-Public Use
  Company Number: PHHY2009KE26195

PATIENT
  Sex: Female
  Weight: 56.5 kg

DRUGS (2)
  1. COARTEM [Suspect]
     Indication: MALARIA
     Dosage: 4 TABS BID
     Route: 048
     Dates: start: 20071101
  2. MEFENAMIC ACID [Concomitant]

REACTIONS (2)
  - ARTHRITIS [None]
  - CONCOMITANT DISEASE AGGRAVATED [None]
